FAERS Safety Report 7802160-9 (Version None)
Quarter: 2011Q4

REPORT INFORMATION
  Report Type: 
  Country: None (occurrence: None)
  Receive Date: 20111007
  Receipt Date: 20110927
  Transmission Date: 20120403
  Serious: Yes (Other)
  Sender: FDA-Public Use
  Company Number: CA-JNJFOC-20110912311

PATIENT
  Sex: Male
  Weight: 88 kg

DRUGS (6)
  1. METHOTREXATE [Concomitant]
     Route: 058
  2. PLAQUENIL [Concomitant]
  3. FOLIC ACID [Concomitant]
  4. ARAVA [Concomitant]
  5. REMICADE [Suspect]
     Route: 042
     Dates: start: 20110601
  6. REMICADE [Suspect]
     Indication: RHEUMATOID ARTHRITIS
     Route: 042
     Dates: start: 20110118

REACTIONS (1)
  - LUNG NEOPLASM MALIGNANT [None]
